FAERS Safety Report 9246033 (Version 1)
Quarter: 2013Q2

REPORT INFORMATION
  Report Type: Spontaneous
  Country: CH (occurrence: CH)
  Receive Date: 20130422
  Receipt Date: 20130422
  Transmission Date: 20140414
  Serious: Yes (Hospitalization, Other)
  Sender: FDA-Public Use
  Company Number: PHHY2013CH029717

PATIENT
  Age: 80 Year
  Sex: Female

DRUGS (2)
  1. AFINITOR [Suspect]
     Indication: BREAST CANCER
     Dosage: 10 MG, UNK
     Dates: start: 201208
  2. AROMASIN [Suspect]
     Indication: BREAST CANCER
     Dates: start: 201208

REACTIONS (7)
  - Ventricular dysfunction [Unknown]
  - General physical health deterioration [Unknown]
  - Pleural effusion [Unknown]
  - Cough [Unknown]
  - Dyspnoea [Unknown]
  - Cardiac failure [Unknown]
  - Oedema peripheral [Unknown]
